FAERS Safety Report 8573781-3 (Version None)
Quarter: 2012Q3

REPORT INFORMATION
  Report Type: 
  Country: None (occurrence: None)
  Receive Date: 20120806
  Receipt Date: 20120726
  Transmission Date: 20120928
  Serious: Yes (Hospitalization)
  Sender: FDA-Public Use
  Company Number: SE-GLAXOSMITHKLINE-B0820402A

PATIENT
  Sex: Female

DRUGS (18)
  1. CANDESARTAN CILEXETIL [Concomitant]
  2. ASACOL [Concomitant]
  3. HYDROXOCOBALAMIN [Concomitant]
  4. LOPERAMIDE [Concomitant]
  5. VOTRIENT [Suspect]
     Indication: RENAL CANCER
     Dosage: 800MG PER DAY
     Route: 048
     Dates: start: 20120515, end: 20120608
  6. BUDESONIDE [Concomitant]
  7. ALVEDON [Concomitant]
  8. OXYCODONE HCL [Concomitant]
  9. CARBAMAZEPINE [Concomitant]
  10. FOLIC ACID [Concomitant]
  11. OMEPRAZOLE [Concomitant]
  12. FUROSEMIDE [Concomitant]
  13. ALPRAZOLAM [Concomitant]
  14. BISOPROLOL FUMARATE [Concomitant]
  15. BETAPRED [Concomitant]
  16. ASPIRIN [Concomitant]
  17. LIPITOR [Concomitant]
  18. OXYCODONE HCL [Concomitant]

REACTIONS (1)
  - SKIN ULCER [None]
